FAERS Safety Report 18812179 (Version 1)
Quarter: 2021Q1

REPORT INFORMATION
  Report Type: Report from Study
  Country: IT (occurrence: IT)
  Receive Date: 20210130
  Receipt Date: 20210130
  Transmission Date: 20210419
  Serious: Yes (Hospitalization)
  Sender: FDA-Public Use
  Company Number: IT-ACCORD-215906

PATIENT
  Age: 18 Year
  Sex: Female

DRUGS (4)
  1. ARIPIPRAZOLE. [Suspect]
     Active Substance: ARIPIPRAZOLE
     Dates: start: 20201126, end: 20201126
  2. EN [Suspect]
     Active Substance: DELORAZEPAM
     Dosage: 1 MG / ML ORAL DROPS, SOLUTION
     Dates: start: 20201126, end: 20201126
  3. SERTRALINE [Concomitant]
     Active Substance: SERTRALINE HYDROCHLORIDE
  4. PARACETAMOL [Suspect]
     Active Substance: ACETAMINOPHEN
     Dates: start: 20201126, end: 20201126

REACTIONS (4)
  - Bradycardia [Not Recovered/Not Resolved]
  - Hypotension [Not Recovered/Not Resolved]
  - Drug abuse [Unknown]
  - Somnolence [Not Recovered/Not Resolved]

NARRATIVE: CASE EVENT DATE: 20201126
